FAERS Safety Report 9856245 (Version 1)
Quarter: 2014Q1

REPORT INFORMATION
  Report Type: Spontaneous
  Country: FR (occurrence: FR)
  Receive Date: 20140130
  Receipt Date: 20140130
  Transmission Date: 20141002
  Serious: Yes (Hospitalization)
  Sender: FDA-Public Use
  Company Number: PHHY2014FR010681

PATIENT
  Age: 70 Year
  Sex: Male

DRUGS (2)
  1. GLIVEC [Suspect]
     Indication: CHRONIC MYELOID LEUKAEMIA
     Dosage: 800 MG, QD
     Route: 048
     Dates: start: 200402
  2. VITAMIN K ANTAGONISTS [Concomitant]
     Dosage: UNK UKN, UNK

REACTIONS (2)
  - Prostate cancer [Recovering/Resolving]
  - Second primary malignancy [Recovering/Resolving]
